FAERS Safety Report 25454725 (Version 3)
Quarter: 2025Q3

REPORT INFORMATION
  Report Type: Spontaneous
  Country: US (occurrence: US)
  Receive Date: 20250619
  Receipt Date: 20250920
  Transmission Date: 20251020
  Serious: No
  Sender: LUPIN
  Company Number: US-LUPIN PHARMACEUTICALS INC.-2025-05065

PATIENT
  Age: 55 Year
  Weight: 89.796 kg

DRUGS (1)
  1. FYAVOLV [Suspect]
     Active Substance: ETHINYL ESTRADIOL\NORETHINDRONE ACETATE
     Indication: Hormone replacement therapy
     Route: 065

REACTIONS (5)
  - Product dose omission issue [Unknown]
  - Product packaging quantity issue [Unknown]
  - Product lot number issue [Unknown]
  - Product expiration date issue [Unknown]
  - No adverse event [Unknown]
